FAERS Safety Report 7416008-8 (Version None)
Quarter: 2011Q2

REPORT INFORMATION
  Report Type: 
  Country: None (occurrence: None)
  Receive Date: 20110414
  Receipt Date: 20110331
  Transmission Date: 20111010
  Serious: Yes (Other)
  Sender: FDA-Public Use
  Company Number: CA-JNJFOC-20100608196

PATIENT
  Sex: Male

DRUGS (12)
  1. NASACORT [Concomitant]
  2. AERIUS [Concomitant]
  3. PLAQUENIL [Concomitant]
  4. METHOTREXATE [Concomitant]
  5. CLOBETASOL PROPIONATE [Concomitant]
  6. VALISONE [Concomitant]
  7. REMICADE [Suspect]
     Indication: PSORIASIS
     Route: 042
  8. REMICADE [Suspect]
     Route: 042
  9. OMEPRAZOLE [Concomitant]
  10. NERISONE [Concomitant]
  11. DOVONEX [Concomitant]
  12. CORTODERM NOS [Concomitant]

REACTIONS (1)
  - LOSS OF CONSCIOUSNESS [None]
